FAERS Safety Report 19237359 (Version 1)
Quarter: 2021Q2

REPORT INFORMATION
  Report Type: Spontaneous
  Country: US (occurrence: US)
  Receive Date: 20210510
  Receipt Date: 20210510
  Transmission Date: 20210717
  Serious: No
  Sender: FDA-Public Use
  Company Number: None

PATIENT
  Age: 60 Year
  Sex: Male
  Weight: 108.6 kg

DRUGS (2)
  1. CASIRIVIMAB/IMDEVIMAB [Suspect]
     Active Substance: CASIRIVIMAB\IMDEVIMAB
     Indication: COVID-19
     Dosage: ?          OTHER FREQUENCY:ONCE;?
     Route: 041
     Dates: start: 20210427, end: 20210427
  2. REGENERON [Concomitant]
     Active Substance: UNSPECIFIED INGREDIENT
     Dates: start: 20210427, end: 20210427

REACTIONS (7)
  - Nausea [None]
  - Feeling hot [None]
  - Heart rate decreased [None]
  - Presyncope [None]
  - Cardio-respiratory arrest [None]
  - Dizziness [None]
  - Flushing [None]

NARRATIVE: CASE EVENT DATE: 20210427
